FAERS Safety Report 5654121-6 (Version None)
Quarter: 2008Q1

REPORT INFORMATION
  Report Type: 
  Country: None (occurrence: None)
  Receive Date: 20080131
  Receipt Date: 20071001
  Transmission Date: 20080703
  Serious: No
  Sender: FDA-Public Use
  Company Number: US200710000597

PATIENT
  Age: 57 Year
  Sex: Female

DRUGS (11)
  1. BYETTA [Suspect]
     Indication: TYPE 2 DIABETES MELLITUS
     Dosage: 5 UG, 2/D, SUBCUTANEOUS ; 5 UG, 2/D, SUBCUTANEOUS
     Route: 058
     Dates: start: 20060101
  2. BYETTA [Suspect]
     Indication: TYPE 2 DIABETES MELLITUS
     Dosage: 5 UG, 2/D, SUBCUTANEOUS ; 5 UG, 2/D, SUBCUTANEOUS
     Route: 058
     Dates: start: 20070601
  3. CYMBALTA [Concomitant]
  4. HUMALOG [Concomitant]
  5. LANTUS [Concomitant]
  6. LISINOPRIL [Concomitant]
  7. LANOXIN [Concomitant]
  8. THEOPHYLLINE [Concomitant]
  9. ALBUTEROL [Concomitant]
  10. LEVOTHYROXINE SODIUM [Concomitant]
  11. XANAX [Concomitant]

REACTIONS (14)
  - BACK PAIN [None]
  - CATARACT [None]
  - CORRECTIVE LENS USER [None]
  - DRY MOUTH [None]
  - DYSPEPSIA [None]
  - HEADACHE [None]
  - HYPERSOMNIA [None]
  - MALAISE [None]
  - PAIN IN EXTREMITY [None]
  - PALPITATIONS [None]
  - SENSATION OF HEAVINESS [None]
  - SUBCUTANEOUS NODULE [None]
  - URINARY INCONTINENCE [None]
  - VISUAL DISTURBANCE [None]
